FAERS Safety Report 14471428 (Version 1)
Quarter: 2018Q1

REPORT INFORMATION
  Report Type: Spontaneous
  Country: GB (occurrence: GB)
  Receive Date: 20180131
  Receipt Date: 20180131
  Transmission Date: 20180509
  Serious: Yes (Other)
  Sender: FDA-Public Use
  Company Number: PHHY2017GB199927

PATIENT
  Age: 16 Year
  Sex: Female

DRUGS (3)
  1. SIROLIMUS. [Interacting]
     Active Substance: SIROLIMUS
     Indication: PRODUCT USED FOR UNKNOWN INDICATION
     Dosage: 4.25 MG/M2, QD
     Route: 065
  2. CLARITHROMYCIN. [Suspect]
     Active Substance: CLARITHROMYCIN
     Indication: PRODUCT USED FOR UNKNOWN INDICATION
     Dosage: UNK
     Route: 048
  3. DIAZOXIDE [Suspect]
     Active Substance: DIAZOXIDE
     Indication: PRODUCT USED FOR UNKNOWN INDICATION
     Dosage: 15.9 MG/KG, QD
     Route: 065

REACTIONS (5)
  - Drug interaction [Recovered/Resolved]
  - Hypertrichosis [Unknown]
  - Infection [Recovered/Resolved]
  - Diabetes mellitus [Recovering/Resolving]
  - Abscess [Recovered/Resolved]
